FAERS Safety Report 9643159 (Version 3)
Quarter: 2013Q4

REPORT INFORMATION
  Report Type: Report from Study
  Country: US (occurrence: US)
  Receive Date: 20131024
  Receipt Date: 20131129
  Transmission Date: 20140711
  Serious: Yes (Other)
  Sender: FDA-Public Use
  Company Number: PHEH2013US022207

PATIENT
  Age: 49 Year
  Sex: Male

DRUGS (5)
  1. TEGRETOL [Suspect]
     Indication: CONVULSION
     Dosage: 7 DF, DAILY (1600 MG IN THE AM AND 1200 MG PM)
     Route: 048
  2. METFORMIN [Concomitant]
     Dosage: UNK UKN, UNK
  3. METHADONE [Concomitant]
     Dosage: UNK UKN, UNK
  4. MOTRIN [Concomitant]
     Dosage: UNK UKN, UNK
  5. LIPITOR [Concomitant]
     Dosage: UNK UKN, UNK

REACTIONS (7)
  - Road traffic accident [Recovering/Resolving]
  - Convulsion [Recovering/Resolving]
  - Lower limb fracture [Unknown]
  - Blood glucose increased [Unknown]
  - Malabsorption [Unknown]
  - Disturbance in attention [Unknown]
  - Visual impairment [Unknown]
